FAERS Safety Report 6088869-9 (Version None)
Quarter: 2009Q1

REPORT INFORMATION
  Report Type: 
  Country: None (occurrence: None)
  Receive Date: 20090224
  Receipt Date: 20090220
  Transmission Date: 20090719
  Serious: Yes (Life-Threatening, Other)
  Sender: FDA-Public Use
  Company Number: PHHY2008AT22460

PATIENT
  Age: 67 Year
  Sex: Female

DRUGS (1)
  1. ACLASTA [Suspect]
     Indication: OSTEOPOROSIS
     Dosage: 5 MG, UNK
     Dates: start: 20080606

REACTIONS (8)
  - BRADYCARDIA [None]
  - CIRCULATORY COLLAPSE [None]
  - DIZZINESS [None]
  - GENERALISED ANXIETY DISORDER [None]
  - HYPOTENSION [None]
  - LOSS OF CONSCIOUSNESS [None]
  - POST-TRAUMATIC STRESS DISORDER [None]
  - RESPIRATORY ARREST [None]
